FAERS Safety Report 18730298 (Version 2)
Quarter: 2021Q1

REPORT INFORMATION
  Report Type: Spontaneous
  Country: CN (occurrence: CN)
  Receive Date: 20210112
  Receipt Date: 20210119
  Transmission Date: 20210419
  Serious: Yes (Life-Threatening)
  Sender: FDA-Public Use
  Company Number: CN-PFIZER INC-2021015446

PATIENT
  Age: 99 Year
  Sex: Female

DRUGS (6)
  1. SANDOSTATINA [OCTREOTIDE] [Suspect]
     Active Substance: OCTREOTIDE
     Dosage: 0.1MG TID
     Route: 042
     Dates: start: 20201231, end: 20210101
  2. NEXIUM I.V. [Suspect]
     Active Substance: ESOMEPRAZOLE SODIUM
     Indication: GASTROINTESTINAL HAEMORRHAGE
     Dosage: 80MG TID
     Route: 042
     Dates: start: 20201225, end: 20201230
  3. MEDIUM AND LONG CHAIN FAT EMULSION INJECTION (C8?24VE) [Concomitant]
     Active Substance: GLYCERIN\MEDIUM-CHAIN TRIGLYCERIDES\PHOSPHOLIPID\SOYBEAN OIL
     Indication: NUTRITIONAL SUPPLEMENTATION
     Dosage: 50 G QD
     Route: 041
     Dates: start: 20201226, end: 20210101
  4. LEVOFLOXACIN HYDROCHLORIDE AND SODIUM CHLORIDE [Concomitant]
     Active Substance: LEVOFLOXACIN HYDROCHLORIDE
     Indication: PNEUMONIA
     Dosage: 0.6G QD
     Route: 041
     Dates: start: 20201224, end: 20210101
  5. MEPEM [Suspect]
     Active Substance: MEROPENEM
     Indication: PNEUMONIA
     Dosage: 1G, TID
     Route: 041
     Dates: start: 20201219, end: 20201230
  6. SANDOSTATINA [OCTREOTIDE] [Suspect]
     Active Substance: OCTREOTIDE
     Indication: GASTROINTESTINAL HAEMORRHAGE
     Dosage: 0.3MG TID
     Route: 042
     Dates: start: 20201225, end: 20201230

REACTIONS (1)
  - Platelet count decreased [Not Recovered/Not Resolved]

NARRATIVE: CASE EVENT DATE: 20201226
